FAERS Safety Report 5043830-8 (Version None)
Quarter: 2006Q2

REPORT INFORMATION
  Report Type: 
  Country: None (occurrence: None)
  Receive Date: 20060601
  Receipt Date: 20060221
  Transmission Date: 20061013
  Serious: No
  Sender: FDA-Public Use
  Company Number: US200602004539

PATIENT
  Sex: Female

DRUGS (2)
  1. CYMBALTA [Suspect]
     Indication: DEPRESSION
     Dosage: 60 MG, DAILY (1/D)
     Dates: start: 20051201
  2. ARIMIDEX [Concomitant]

REACTIONS (2)
  - DRUG INTERACTION POTENTIATION [None]
  - RASH PRURITIC [None]
